FAERS Safety Report 14810890 (Version 3)
Quarter: 2018Q4

REPORT INFORMATION
  Report Type: Report from Study
  Country: US (occurrence: US)
  Receive Date: 20180425
  Receipt Date: 20181017
  Transmission Date: 20190204
  Serious: No
  Sender: FDA-Public Use
  Company Number: US-AMGEN-USASL2018038649

PATIENT
  Age: 56 Year
  Sex: Male

DRUGS (1)
  1. REPATHA [Suspect]
     Active Substance: EVOLOCUMAB
     Indication: HYPERCHOLESTEROLAEMIA
     Dosage: 140 MG, Q2WK
     Route: 065

REACTIONS (7)
  - Dizziness [Unknown]
  - Diarrhoea [Recovered/Resolved]
  - Injection site pain [Not Recovered/Not Resolved]
  - Rhinorrhoea [Unknown]
  - Joint noise [Unknown]
  - Headache [Unknown]
  - Sneezing [Recovered/Resolved]
